FAERS Safety Report 4314615-2 (Version None)
Quarter: 2004Q1

REPORT INFORMATION
  Report Type: 
  Country: None (occurrence: None)
  Receive Date: 20040308
  Receipt Date: 20040226
  Transmission Date: 20041129
  Serious: Yes (Hospitalization)
  Sender: FDA-Public Use
  Company Number: 04P-087-0251831-00

PATIENT
  Age: 50 Year
  Sex: Male
  Weight: 121 kg

DRUGS (3)
  1. BIAXIN [Suspect]
     Indication: INFECTION
     Dosage: 200 MG, 2 IN 1 D, PER ORAL
     Route: 048
     Dates: start: 20040105, end: 20040105
  2. FOSFOMYCIN [Suspect]
     Indication: INFECTION
     Dosage: 1 GM, 1 IN 1 D, INTRAVENOUS
     Route: 042
     Dates: start: 20040106, end: 20040106
  3. CEFOZOPRAN HYDROCHLORIDE [Suspect]
     Indication: INFECTION
     Dosage: 4 GM, 1 IN 1 D, INTRAVENOUS
     Route: 042
     Dates: start: 20040106, end: 20040106

REACTIONS (3)
  - HEPATIC FUNCTION ABNORMAL [None]
  - RASH [None]
  - RENAL IMPAIRMENT [None]
